FAERS Safety Report 6620100-5 (Version None)
Quarter: 2010Q1

REPORT INFORMATION
  Report Type: 
  Country: None (occurrence: None)
  Receive Date: 20100309
  Receipt Date: 20100302
  Transmission Date: 20100710
  Serious: Yes (Other)
  Sender: FDA-Public Use
  Company Number: US-SANOFI-AVENTIS-2010SA012445

PATIENT
  Age: 73 Year
  Sex: Female

DRUGS (4)
  1. LANTUS [Suspect]
     Dosage: DOSE TO BE INCREASED TO 30 U ; 04MAR-2010 DOSE:20 UNIT(S)
     Route: 058
  2. OPTICLICK [Suspect]
  3. BETA BLOCKING AGENTS [Concomitant]
  4. VITAMINS [Concomitant]

REACTIONS (3)
  - BRAIN NEOPLASM MALIGNANT [None]
  - INJECTION SITE PAIN [None]
  - MEMORY IMPAIRMENT [None]
